FAERS Safety Report 4563808-8 (Version None)
Quarter: 2005Q1

REPORT INFORMATION
  Report Type: 
  Country: None (occurrence: None)
  Receive Date: 20050128
  Receipt Date: 20041210
  Transmission Date: 20050727
  Serious: Yes (Hospitalization)
  Sender: FDA-Public Use
  Company Number: PHHO2004DK17727

PATIENT
  Age: 52 Year
  Sex: Female
  Weight: 43 kg

DRUGS (4)
  1. SANDIMMUNE [Suspect]
     Indication: LUNG TRANSPLANT
     Dosage: 150 MG, BID
     Dates: start: 20041009, end: 20041206
  2. SANDIMMUNE [Suspect]
     Dosage: 325 MG / DAY
     Route: 048
     Dates: start: 20041207
  3. IMUREL [Concomitant]
     Indication: LUNG TRANSPLANT
     Dosage: 50 MG, QD
     Dates: start: 20041009
  4. PREDNISOLONE [Concomitant]
     Indication: LUNG TRANSPLANT
     Dosage: 5 MG, QD
     Dates: start: 20041122

REACTIONS (2)
  - DYSPNOEA [None]
  - PLEURAL EFFUSION [None]
